FAERS Safety Report 4958088-5 (Version None)
Quarter: 2006Q1

REPORT INFORMATION
  Report Type: 
  Country: None (occurrence: None)
  Receive Date: 20060127
  Receipt Date: 20041202
  Transmission Date: 20060701
  Serious: Yes (Hospitalization, Other)
  Sender: FDA-Public Use
  Company Number: 04-12-1677

PATIENT
  Age: 44 Year
  Sex: Male

DRUGS (5)
  1. CLOZAPINE [Suspect]
     Indication: SCHIZOAFFECTIVE DISORDER
     Dosage: 600MG QHS; ORAL
     Route: 048
     Dates: start: 20040201, end: 20041104
  2. SEROQUEL [Concomitant]
  3. DEPAKOTE [Concomitant]
  4. EFFEXOR [Concomitant]
  5. PAXIL [Concomitant]

REACTIONS (2)
  - AGRANULOCYTOSIS [None]
  - STAPHYLOCOCCAL INFECTION [None]
